FAERS Safety Report 9806731 (Version 1)
Quarter: 2014Q1

REPORT INFORMATION
  Report Type: Spontaneous
  Country: US (occurrence: US)
  Receive Date: 20140109
  Receipt Date: 20140109
  Transmission Date: 20141002
  Serious: No
  Sender: FDA-Public Use
  Company Number: US-ENDO PHARMACEUTICALS INC.-FORT20130364

PATIENT
  Sex: Male
  Weight: 111.23 kg

DRUGS (2)
  1. FORTESTA [Suspect]
     Indication: BLOOD TESTOSTERONE DECREASED
     Route: 061
     Dates: start: 2013, end: 201310
  2. FORTESTA [Suspect]
     Route: 061
     Dates: start: 201310

REACTIONS (4)
  - Application site pain [Not Recovered/Not Resolved]
  - Underdose [Recovered/Resolved]
  - Application site rash [Not Recovered/Not Resolved]
  - Incorrect dose administered [Recovered/Resolved]
